FAERS Safety Report 21023746 (Version 1)
Quarter: 2022Q2

REPORT INFORMATION
  Report Type: Spontaneous
  Country: RU (occurrence: RU)
  Receive Date: 20220629
  Receipt Date: 20220629
  Transmission Date: 20220721
  Serious: Yes (Death)
  Sender: FDA-Public Use
  Company Number: RU-AstraZeneca-2022A229644

PATIENT
  Sex: Male

DRUGS (1)
  1. METOPROLOL SUCCINATE [Suspect]
     Active Substance: METOPROLOL SUCCINATE
     Indication: Product used for unknown indication
     Route: 065

REACTIONS (2)
  - Neoplasm malignant [Fatal]
  - Erectile dysfunction [Unknown]
